FAERS Safety Report 16772888 (Version 1)
Quarter: 2019Q3

REPORT INFORMATION
  Report Type: Spontaneous
  Country: US (occurrence: US)
  Receive Date: 20190715
  Receipt Date: 20190715
  Transmission Date: 20191005
  Serious: Yes (Hospitalization)
  Sender: FDA-Public Use
  Company Number: None

PATIENT
  Sex: Female

DRUGS (6)
  1. ALBUTEROL AER HFA [Concomitant]
  2. PROGESTERONE 50MG/ML MDV [Suspect]
     Active Substance: PROGESTERONE
     Indication: INFERTILITY
     Route: 030
     Dates: start: 20180216
  3. AMOX/K CLAV TAB [Concomitant]
  4. NORETH/ETHIN CHW FE [Concomitant]
  5. VIRTUSSIN AC SOL [Concomitant]
  6. LO LOESTRIN TAB [Concomitant]

REACTIONS (1)
  - Weight increased [None]
